FAERS Safety Report 4640041-2 (Version None)
Quarter: 2005Q2

REPORT INFORMATION
  Report Type: 
  Country: None (occurrence: None)
  Receive Date: 20050418
  Receipt Date: 20050405
  Transmission Date: 20051028
  Serious: Yes (Disabling, Other)
  Sender: FDA-Public Use
  Company Number: 2005055499

PATIENT
  Age: 73 Year
  Sex: Female
  Weight: 111.1313 kg

DRUGS (3)
  1. CELEBREX [Suspect]
     Indication: BACK PAIN
     Dosage: 200 MG (200 MG, 1 IN 1 D), ORAL
     Route: 048
     Dates: start: 20010701, end: 20010701
  2. OXYCODONE (OXYCODONE) [Concomitant]
  3. DRUG, UNSPECIFIED (DRUG, UNSPECIFIED) [Concomitant]

REACTIONS (7)
  - DIFFICULTY IN WALKING [None]
  - HYPOAESTHESIA [None]
  - INSOMNIA [None]
  - OEDEMA PERIPHERAL [None]
  - PAIN IN EXTREMITY [None]
  - PERIPHERAL VASCULAR DISORDER [None]
  - SKIN DISCOLOURATION [None]
